FAERS Safety Report 16783941 (Version 1)
Quarter: 2019Q3

REPORT INFORMATION
  Report Type: Spontaneous
  Country: NL (occurrence: NL)
  Receive Date: 20190909
  Receipt Date: 20190909
  Transmission Date: 20191005
  Serious: Yes (Other)
  Sender: FDA-Public Use
  Company Number: NL-TEVA-2019-NL-1103392

PATIENT
  Sex: Male

DRUGS (4)
  1. FEBUXOSTAT TABLET 80 MG [Concomitant]
     Dosage: 1 DD 1, 80 MILLIGRAM
  2. COLCHICINE TABLET 0,5 MG [Concomitant]
     Dosage: 2-3D1T
  3. ALLOPURINOL TABLET, 100 MG (MILLIGRAM) [Suspect]
     Active Substance: ALLOPURINOL
     Indication: GOUT
     Dosage: 1D2T, 200 MILLIGRAM
     Dates: start: 20190418
  4. PREDNISOLON 30 MG [Concomitant]
     Dosage: 1D1T, 30 MILLIGRAM
     Dates: start: 20190618, end: 20190629

REACTIONS (1)
  - Chorioretinopathy [Unknown]
